FAERS Safety Report 6103695-X (Version None)
Quarter: 2009Q1

REPORT INFORMATION
  Report Type: 
  Country: None (occurrence: None)
  Receive Date: 20090305
  Receipt Date: 20090225
  Transmission Date: 20090719
  Serious: Yes (Death, Other)
  Sender: FDA-Public Use
  Company Number: US-AVENTIS-200616826US

PATIENT
  Sex: Male
  Weight: 95 kg

DRUGS (21)
  1. LANTUS [Suspect]
     Indication: DIABETES MELLITUS
     Route: 058
     Dates: start: 20060609, end: 20060611
  2. LANTUS [Suspect]
     Route: 058
     Dates: end: 20060609
  3. NIASPAN [Suspect]
     Route: 048
     Dates: start: 20060611, end: 20060611
  4. NIASPAN [Suspect]
     Route: 048
     Dates: start: 20060611, end: 20060611
  5. WELLBUTRIN [Suspect]
     Indication: DEPRESSION
     Route: 048
     Dates: end: 20060611
  6. EFFEXOR [Suspect]
     Indication: DEPRESSION
     Route: 048
     Dates: end: 20060611
  7. LORAZEPAM [Suspect]
     Indication: ANXIETY
     Route: 048
     Dates: end: 20060611
  8. TRAZODONE HCL [Suspect]
     Indication: DEPRESSION
     Route: 048
     Dates: end: 20060611
  9. TENORMIN [Suspect]
     Indication: TACHYARRHYTHMIA
     Route: 048
     Dates: end: 20060611
  10. LANOXIN [Suspect]
     Indication: TACHYARRHYTHMIA
     Route: 048
     Dates: end: 20060611
  11. GLUCOPHAGE [Suspect]
     Indication: DIABETES MELLITUS
     Route: 048
     Dates: end: 20060611
  12. GLUCOTROL XL [Suspect]
     Indication: DIABETES MELLITUS
     Route: 048
     Dates: end: 20060611
  13. ACTOS [Suspect]
     Indication: DIABETES MELLITUS
     Route: 048
     Dates: end: 20060611
  14. TRICOR [Suspect]
     Route: 048
     Dates: end: 20060611
  15. LIPITOR [Suspect]
     Route: 048
     Dates: end: 20060611
  16. RISPERDAL [Suspect]
     Indication: SLEEP DISORDER
     Dosage: DOSE: 3 DOSAGE FORMS
     Route: 048
     Dates: end: 20060611
  17. MULTI-VITAMINS [Suspect]
     Dosage: DOSE: UNK
     Route: 048
     Dates: end: 20060611
  18. CENTRUM SILVER                     /01292501/ [Concomitant]
     Dosage: DOSE: 1 DOSAGE FORM
     Dates: end: 20060611
  19. THIAMINE HYDROCHLORIDE [Concomitant]
     Dosage: DOSE: 1 DOSAGE FORM
     Dates: end: 20060611
  20. PYRIDOXINE HYDROCHLORIDE [Concomitant]
     Dosage: DOSE: 1 DOSAGE FORM
     Dates: end: 20060611
  21. CYANOCOBALAMIN-TANNIN COMPLEX [Concomitant]
     Dosage: DOSE: 1 DOSAGE FORM
     Dates: end: 20060611

REACTIONS (8)
  - BLOOD GLUCOSE INCREASED [None]
  - CARDIO-RESPIRATORY ARREST [None]
  - DRUG INTERACTION [None]
  - ERYTHEMA [None]
  - FLUSHING [None]
  - MEDICATION ERROR [None]
  - MYOCARDIAL INFARCTION [None]
  - SKIN DISORDER [None]
